FAERS Safety Report 15602029 (Version 2)
Quarter: 2018Q4

REPORT INFORMATION
  Report Type: Spontaneous
  Country: RO (occurrence: RO)
  Receive Date: 20181109
  Receipt Date: 20181121
  Transmission Date: 20190205
  Serious: Yes (Other)
  Sender: FDA-Public Use
  Company Number: RO-ASTRAZENECA-2018SF45747

PATIENT
  Age: 43 Year
  Sex: Male

DRUGS (4)
  1. BRILIQUE [Suspect]
     Active Substance: TICAGRELOR
     Indication: STENT PLACEMENT
     Route: 048
     Dates: start: 201801
  2. ASA [Concomitant]
     Active Substance: ASPIRIN
     Indication: ANGINA UNSTABLE
     Route: 065
     Dates: start: 201801
  3. BRILIQUE [Suspect]
     Active Substance: TICAGRELOR
     Indication: ANGINA UNSTABLE
     Route: 048
     Dates: start: 201801
  4. ASA [Concomitant]
     Active Substance: ASPIRIN
     Indication: STENT PLACEMENT
     Route: 065
     Dates: start: 201801

REACTIONS (2)
  - Angina unstable [Recovering/Resolving]
  - Complication associated with device [Unknown]

NARRATIVE: CASE EVENT DATE: 201807
